FAERS Safety Report 5406168-2 (Version None)
Quarter: 2007Q3

REPORT INFORMATION
  Report Type: 
  Country: None (occurrence: None)
  Receive Date: 20070801
  Receipt Date: 20070717
  Transmission Date: 20080115
  Serious: Yes (Disabling)
  Sender: FDA-Public Use
  Company Number: 100#08#2007-02378

PATIENT
  Age: 57 Year
  Sex: Male

DRUGS (4)
  1. FLUOROURACIL [Suspect]
     Indication: METASTASES TO LUNG
     Dosage: 500MG/M2, ONCE A WEEK FOR 4 WEEKS EVERY 6 WEEKS, INTRAVENOUS
     Route: 042
  2. FOLINIC ACID (FOLINIC ACID) (CALCIUM FOLINATE) [Suspect]
     Indication: METASTASES TO LUNG
     Dosage: 20MG/M2, ONCE A WEEK FOR 4 WEEKS EVERY 6 WEEKS,  INTRAVENOUS
     Route: 042
  3. BEVACIZUMAB (BEVACIZUMAB) (BEVACIZUMAB)1 [Suspect]
     Indication: METASTASES TO LUNG
     Dosage: 5 MG/KG EVERY 2 WEEKS
  4. IRINOTECAN (IRINOTECAN) (IRINOTECAN) [Suspect]
     Indication: METASTASES TO LUNG
     Dosage: 125MG/M2, ONCE A WEEK FOR 4 WEEKS EVERY 6 WEEKS, INTRAVENOUS
     Route: 042

REACTIONS (4)
  - EMBOLISM [None]
  - NECROSIS [None]
  - PERIPHERAL ISCHAEMIA [None]
  - TOE AMPUTATION [None]
